FAERS Safety Report 8057412-7 (Version None)
Quarter: 2012Q1

REPORT INFORMATION
  Report Type: 
  Country: None (occurrence: None)
  Receive Date: 20120119
  Receipt Date: 20120113
  Transmission Date: 20120608
  Serious: Yes (Hospitalization)
  Sender: FDA-Public Use
  Company Number: US-ROCHE-1031105

PATIENT
  Sex: Female

DRUGS (12)
  1. WELLBUTRIN [Concomitant]
  2. FISH OIL [Concomitant]
  3. ZYRTEC [Concomitant]
  4. XOLAIR [Suspect]
     Indication: ASTHMA
     Route: 058
     Dates: start: 20040402, end: 20120103
  5. SIMVASTATIN [Concomitant]
  6. ACYCLOVIR [Concomitant]
  7. OMEPRAZOLE MAGNESIUM [Concomitant]
  8. MELOXICAM [Concomitant]
  9. VENTOLIN [Concomitant]
  10. SINGULAIR [Concomitant]
  11. ASPIRIN [Concomitant]
  12. VIT B + E [Concomitant]

REACTIONS (3)
  - BLOOD PRESSURE INCREASED [None]
  - HEART RATE INCREASED [None]
  - CHEST DISCOMFORT [None]
